FAERS Safety Report 6302166-5 (Version None)
Quarter: 2009Q3

REPORT INFORMATION
  Report Type: 
  Country: None (occurrence: None)
  Receive Date: 20090808
  Receipt Date: 20090803
  Transmission Date: 20100115
  Serious: Yes (Other)
  Sender: FDA-Public Use
  Company Number: DE-B.I. PHARMACEUTICALS,INC./RIDGEFIELD-2009-DE-05231DE

PATIENT
  Age: 78 Year
  Sex: Female

DRUGS (3)
  1. SIFROL [Suspect]
     Route: 048
  2. MIRTAZAPINE [Suspect]
     Route: 048
  3. PK MERZ 100 [Suspect]
     Dosage: 20 ANZ
     Route: 048

REACTIONS (4)
  - DRUG ABUSE [None]
  - OVERDOSE [None]
  - SOMNOLENCE [None]
  - SUICIDE ATTEMPT [None]
